FAERS Safety Report 4588953-2 (Version None)
Quarter: 2005Q1

REPORT INFORMATION
  Report Type: 
  Country: None (occurrence: None)
  Receive Date: 20050216
  Receipt Date: 20050202
  Transmission Date: 20050727
  Serious: Yes (Death, Hospitalization, Other)
  Sender: FDA-Public Use
  Company Number: USA050289723

PATIENT
  Age: 79 Year
  Sex: Female

DRUGS (3)
  1. GEMZAR [Suspect]
     Indication: BREAST CANCER METASTATIC
     Dates: start: 20041118, end: 20041118
  2. TAXOL [Concomitant]
  3. LIPITOR [Concomitant]

REACTIONS (11)
  - ANURIA [None]
  - ASTHENIA [None]
  - BLOOD POTASSIUM INCREASED [None]
  - BLOOD PRESSURE DECREASED [None]
  - DEHYDRATION [None]
  - DIZZINESS [None]
  - INTESTINAL FUNCTIONAL DISORDER [None]
  - NEUTROPENIA [None]
  - RENAL FAILURE [None]
  - VENTRICULAR EXTRASYSTOLES [None]
  - VOMITING [None]
